FAERS Safety Report 10083703 (Version 1)
Quarter: 2014Q2

REPORT INFORMATION
  Report Type: Spontaneous
  Country: US (occurrence: US)
  Receive Date: 20140417
  Receipt Date: 20140417
  Transmission Date: 20141212
  Serious: No
  Sender: FDA-Public Use
  Company Number: US-PFIZER INC-2014105632

PATIENT
  Age: 78 Year
  Sex: Female
  Weight: 73.02 kg

DRUGS (9)
  1. NEURONTIN [Suspect]
     Indication: DIABETIC NEUROPATHY
     Dosage: UNK
  2. PLAVIX [Concomitant]
     Indication: CARDIAC DISORDER
     Dosage: UNK, 1X/DAY
     Route: 048
  3. GLYBURIDE [Concomitant]
     Indication: DIABETES MELLITUS
     Dosage: UNK, 2X/DAY
     Route: 048
  4. LASIX [Concomitant]
     Dosage: UNK, 1X/DAY
  5. SECTRAL [Concomitant]
     Dosage: UNK, 2X/DAY
     Route: 048
  6. ENDURON [Concomitant]
     Dosage: UNK, 1X/DAY
     Route: 048
  7. CELEXA [Concomitant]
     Dosage: UNK, 1X/DAY
     Route: 048
  8. DIAZEPAM [Concomitant]
     Dosage: UNK, 3X/DAY
  9. LORTAB [Concomitant]
     Dosage: [HYDROCODONE 7.5]/[ACETAMINOPHEN 500] EVERY 4 TO 6 HOURS AS NEEDED

REACTIONS (1)
  - Drug ineffective [Unknown]
